FAERS Safety Report 17805043 (Version 15)
Quarter: 2022Q2

REPORT INFORMATION
  Report Type: Spontaneous
  Country: CA (occurrence: CA)
  Receive Date: 20200520
  Receipt Date: 20220630
  Transmission Date: 20220721
  Serious: Yes (Other)
  Sender: FDA-Public Use
  Company Number: CA-CELLTRION INC.-2018CA024552

PATIENT

DRUGS (30)
  1. INFLECTRA [Suspect]
     Active Substance: INFLIXIMAB-DYYB
     Indication: Crohn^s disease
     Dosage: 400 MG (Q 0, 2, 6 WEEKS, THEN EVERY 8 WEEKS)
     Route: 042
     Dates: start: 20181112, end: 20190416
  2. INFLECTRA [Suspect]
     Active Substance: INFLIXIMAB-DYYB
     Dosage: 400 MG, (Q 0, 2, 6 WEEKS, THEN EVERY 8 WEEKS)
     Route: 042
     Dates: start: 20181128
  3. INFLECTRA [Suspect]
     Active Substance: INFLIXIMAB-DYYB
     Dosage: 400 MG, (Q 0, 2, 6 WEEKS, THEN EVERY 8 WEEKS)
     Route: 042
     Dates: start: 20190221
  4. INFLECTRA [Suspect]
     Active Substance: INFLIXIMAB-DYYB
     Dosage: 400 MG, (Q 0, 2, 6 WEEKS, THEN EVERY 8 WEEKS)
     Route: 042
     Dates: start: 20190416
  5. INFLECTRA [Suspect]
     Active Substance: INFLIXIMAB-DYYB
     Dosage: 500 MG, OR 5MG/KG EVERY 8 WEEKS
     Route: 042
     Dates: start: 20190611
  6. INFLECTRA [Suspect]
     Active Substance: INFLIXIMAB-DYYB
     Dosage: 500 MG, OR 5MG/KG EVERY 8 WEEKS
     Route: 042
     Dates: start: 20200123
  7. INFLECTRA [Suspect]
     Active Substance: INFLIXIMAB-DYYB
     Dosage: 500 MG, OR 5MG/KG EVERY 8 WEEKS
     Route: 042
     Dates: start: 20200318
  8. INFLECTRA [Suspect]
     Active Substance: INFLIXIMAB-DYYB
     Dosage: 500 MG, OR 5MG/KG EVERY 8 WEEKS
     Route: 042
     Dates: start: 20200604
  9. INFLECTRA [Suspect]
     Active Substance: INFLIXIMAB-DYYB
     Dosage: 500 MG, OR 5MG/KG EVERY 8 WEEKS
     Route: 042
     Dates: start: 20200731
  10. INFLECTRA [Suspect]
     Active Substance: INFLIXIMAB-DYYB
     Dosage: 500 MG, OR 5MG/KG EVERY 8 WEEKS
     Route: 042
     Dates: start: 20200923
  11. INFLECTRA [Suspect]
     Active Substance: INFLIXIMAB-DYYB
     Dosage: 500 MG, OR 5MG/KG EVERY 8 WEEKS
     Route: 042
     Dates: start: 20201118
  12. INFLECTRA [Suspect]
     Active Substance: INFLIXIMAB-DYYB
     Dosage: 500 MG, OR 5MG/KG EVERY 8 WEEKS
     Route: 042
     Dates: start: 20210113
  13. INFLECTRA [Suspect]
     Active Substance: INFLIXIMAB-DYYB
     Dosage: 500 MG, OR 5MG/KG EVERY 8 WEEKS
     Route: 042
     Dates: start: 20210315
  14. INFLECTRA [Suspect]
     Active Substance: INFLIXIMAB-DYYB
     Dosage: 500 MG OR 5MG/KG EVERY 8 WEEKS
     Route: 042
     Dates: start: 20210510
  15. INFLECTRA [Suspect]
     Active Substance: INFLIXIMAB-DYYB
     Dosage: 500 MG OR 5MG/KG EVERY 8 WEEKS
     Route: 042
     Dates: start: 20210830
  16. INFLECTRA [Suspect]
     Active Substance: INFLIXIMAB-DYYB
     Dosage: 500 MG OR 5MG/KG EVERY 8 WEEKS
     Route: 042
     Dates: start: 20211005
  17. INFLECTRA [Suspect]
     Active Substance: INFLIXIMAB-DYYB
     Dosage: 500 MG OR 5MG/KG EVERY 8 WEEKS
     Route: 042
     Dates: start: 20211105
  18. INFLECTRA [Suspect]
     Active Substance: INFLIXIMAB-DYYB
     Dosage: 500 MG OR 5MG/KG EVERY 8 WEEKS
     Route: 042
     Dates: start: 20220228
  19. INFLECTRA [Suspect]
     Active Substance: INFLIXIMAB-DYYB
     Dosage: 500 MG OR 5MG/KG EVERY 8 WEEKS
     Route: 042
     Dates: start: 20220425
  20. INFLECTRA [Suspect]
     Active Substance: INFLIXIMAB-DYYB
     Dosage: 500 MG OR 5MG/KG EVERY 8 WEEKS
     Route: 042
     Dates: start: 20220620
  21. IBUPROFEN [Concomitant]
     Active Substance: IBUPROFEN
     Dosage: 1 DF, 25 MG - 200 MG QHS, AS NEEDED
     Route: 065
  22. ALPRAZOLAM [Concomitant]
     Active Substance: ALPRAZOLAM
     Indication: Anxiety
     Dosage: 0.5 MG, 2X/DAY, AS NEEDED
     Route: 065
  23. ALPRAZOLAM [Concomitant]
     Active Substance: ALPRAZOLAM
     Dosage: UNK
  24. CELEBREX [Concomitant]
     Active Substance: CELECOXIB
     Indication: Pain
     Dosage: 200 MG, 1X/DAY (PRN)
     Route: 065
  25. FOLIC ACID [Concomitant]
     Active Substance: FOLIC ACID
     Dosage: 5 MG, 1X/DAY (MORNING)
     Route: 065
  26. FOLIC ACID [Concomitant]
     Active Substance: FOLIC ACID
     Dosage: UNK
  27. ZOPICLONE [Concomitant]
     Active Substance: ZOPICLONE
     Dosage: UNK
  28. PREDNISONE [Concomitant]
     Active Substance: PREDNISONE
     Dosage: 5 MG TAPERING DOSES
     Route: 065
  29. PRISTIQ EXTENDED-RELEASE [Concomitant]
     Active Substance: DESVENLAFAXINE SUCCINATE
     Dosage: 50 MG, 1X/DAY
     Route: 065
  30. ZOPICLONE [Concomitant]
     Active Substance: ZOPICLONE
     Dosage: 7.5 MG, QHS
     Route: 065

REACTIONS (12)
  - Prostate cancer stage I [Unknown]
  - Urinary tract infection bacterial [Unknown]
  - Therapeutic product effect incomplete [Unknown]
  - Off label use [Unknown]
  - Intentional product use issue [Unknown]
  - Inappropriate schedule of product administration [Unknown]
  - Weight increased [Unknown]
  - Arthralgia [Not Recovered/Not Resolved]
  - Functional gastrointestinal disorder [Unknown]
  - Mucous stools [Not Recovered/Not Resolved]
  - Diarrhoea [Not Recovered/Not Resolved]
  - Condition aggravated [Recovering/Resolving]

NARRATIVE: CASE EVENT DATE: 20190416
